FAERS Safety Report 9549174 (Version 1)
Quarter: 2013Q3

REPORT INFORMATION
  Report Type: Report from Study
  Country: US (occurrence: US)
  Receive Date: 20130924
  Receipt Date: 20130924
  Transmission Date: 20140515
  Serious: Yes (Death)
  Sender: FDA-Public Use
  Company Number: US-ABBVIE-13P-163-1149848-00

PATIENT
  Age: 47 Year
  Sex: Male

DRUGS (3)
  1. NORVIR [Suspect]
     Indication: PRODUCT USED FOR UNKNOWN INDICATION
  2. REYATAZ [Concomitant]
     Indication: PRODUCT USED FOR UNKNOWN INDICATION
  3. ISENTRESS [Concomitant]
     Indication: PRODUCT USED FOR UNKNOWN INDICATION

REACTIONS (1)
  - Neoplasm malignant [Fatal]
